FAERS Safety Report 15503608 (Version 1)
Quarter: 2018Q4

REPORT INFORMATION
  Report Type: Spontaneous
  Country: US (occurrence: US)
  Receive Date: 20181009
  Receipt Date: 20181009
  Transmission Date: 20190205
  Serious: Yes (Other)
  Sender: FDA-Public Use
  Company Number: None

PATIENT
  Age: 11 Year
  Sex: Male
  Weight: 35.2 kg

DRUGS (1)
  1. SODIUM CHLORIDE 7% [Suspect]
     Active Substance: SODIUM CHLORIDE
     Indication: CYSTIC FIBROSIS
     Dates: start: 20150505, end: 20150612

REACTIONS (5)
  - Drug intolerance [None]
  - Cough [None]
  - Product substitution issue [None]
  - Insurance issue [None]
  - Bronchospasm [None]

NARRATIVE: CASE EVENT DATE: 20150512
